FAERS Safety Report 23694463 (Version 1)
Quarter: 2024Q2

REPORT INFORMATION
  Report Type: Spontaneous
  Country: IT (occurrence: IT)
  Receive Date: 20240401
  Receipt Date: 20240401
  Transmission Date: 20240716
  Serious: Yes (Hospitalization, Other)
  Sender: FDA-Public Use
  Company Number: IT-EMA-DD-20240321-7482711-114554

PATIENT
  Age: 46 Year
  Sex: Male

DRUGS (16)
  1. CALCIUM CARBONATE [Concomitant]
     Active Substance: CALCIUM CARBONATE
     Indication: Osteoporosis
     Route: 065
  2. CHOLECALCIFEROL [Concomitant]
     Active Substance: CHOLECALCIFEROL
     Indication: Osteoporosis
     Route: 065
  3. EVEROLIMUS [Concomitant]
     Active Substance: EVEROLIMUS
     Indication: Immunosuppressant drug therapy
     Dosage: 1.500MG BID
     Route: 065
     Dates: start: 2011
  4. INSULIN GLARGINE [Concomitant]
     Active Substance: INSULIN GLARGINE
     Indication: Type 1 diabetes mellitus
     Route: 065
  5. INSULIN LISPRO [Concomitant]
     Active Substance: INSULIN LISPRO
     Indication: Type 1 diabetes mellitus
     Route: 065
  6. OSELTAMIVIR [Concomitant]
     Active Substance: OSELTAMIVIR
     Indication: H1N1 influenza
     Route: 065
  7. AZITHROMYCIN [Interacting]
     Active Substance: AZITHROMYCIN
     Indication: Antibiotic therapy
     Dosage: 500.000MG QD
     Route: 048
  8. AMIKACIN [Interacting]
     Active Substance: AMIKACIN
     Indication: Antibiotic therapy
     Dosage: 1.000G QD
     Route: 042
  9. CEPHALEXIN [Interacting]
     Active Substance: CEPHALEXIN
     Indication: Antibiotic therapy
     Dosage: 2.000G TID
     Route: 065
  10. CEPHALEXIN [Interacting]
     Active Substance: CEPHALEXIN
     Dosage: 2.000G TID
     Route: 065
  11. FOSFOMYCIN [Interacting]
     Active Substance: FOSFOMYCIN
     Indication: Antibiotic therapy
     Dosage: 16.000G QD
     Route: 065
     Dates: start: 2011
  12. LEVOFLOXACIN [Interacting]
     Active Substance: LEVOFLOXACIN
     Indication: Antibiotic therapy
     Dosage: 500.000MG QD
     Route: 065
  13. MYCOPHENOLATE MOFETIL [Interacting]
     Active Substance: MYCOPHENOLATE MOFETIL
     Indication: Immunosuppressant drug therapy
     Dosage: 1500.000MG QD
     Route: 065
     Dates: start: 2011
  14. MEROPENEM [Interacting]
     Active Substance: MEROPENEM
     Indication: Antibiotic therapy
     Dosage: 2.000G TID
     Route: 042
  15. PIPERACILLIN SODIUM\TAZOBACTAM SODIUM [Interacting]
     Active Substance: PIPERACILLIN SODIUM\TAZOBACTAM SODIUM
     Indication: Antibiotic therapy
     Dosage: 16.000G QD
     Route: 065
  16. SULFAMETHOXAZOLE AND TRIMETHOPRIM [Interacting]
     Active Substance: SULFAMETHOXAZOLE\TRIMETHOPRIM
     Indication: Product used for unknown indication
     Dosage: 1.000DF BID
     Route: 065

REACTIONS (2)
  - Drug interaction [Recovered/Resolved]
  - Immunosuppressant drug level decreased [Recovered/Resolved]
